FAERS Safety Report 11768130 (Version 1)
Quarter: 2015Q4

REPORT INFORMATION
  Report Type: Spontaneous
  Country: US (occurrence: None)
  Receive Date: 20151120
  Receipt Date: 20151120
  Transmission Date: 20160304
  Serious: Yes (Other)
  Sender: FDA-Public Use
  Company Number: None

PATIENT
  Age: 56 Year
  Sex: Female
  Weight: 104 kg

DRUGS (7)
  1. TUMS [Concomitant]
     Active Substance: CALCIUM CARBONATE
  2. LEVOTHYROXINE. [Concomitant]
     Active Substance: LEVOTHYROXINE
  3. FLUTICASONE [Concomitant]
     Active Substance: FLUTICASONE\FLUTICASONE PROPIONATE
  4. SMZ-TMP [Suspect]
     Active Substance: SULFAMETHOXAZOLE\TRIMETHOPRIM
     Indication: POST PROCEDURAL COMPLICATION
     Dosage: 1 PILL
     Route: 048
     Dates: start: 20151116, end: 20151119
  5. SMZ-TMP [Suspect]
     Active Substance: SULFAMETHOXAZOLE\TRIMETHOPRIM
     Indication: CELLULITIS
     Dosage: 1 PILL
     Route: 048
     Dates: start: 20151116, end: 20151119
  6. SERTRALINE [Concomitant]
     Active Substance: SERTRALINE HYDROCHLORIDE
  7. CENTRUM WOMEN [Concomitant]

REACTIONS (2)
  - Hypoglycaemia [None]
  - Feeling abnormal [None]

NARRATIVE: CASE EVENT DATE: 20151119
